FAERS Safety Report 9880738 (Version 1)
Quarter: 2014Q1

REPORT INFORMATION
  Report Type: Spontaneous
  Country: US (occurrence: None)
  Receive Date: 20140206
  Receipt Date: 20140206
  Transmission Date: 20141002
  Serious: No
  Sender: FDA-Public Use
  Company Number: None

PATIENT
  Age: 35 Year
  Sex: Female

DRUGS (6)
  1. BENLYSTA [Suspect]
     Route: 042
     Dates: start: 20131030
  2. PLAQUENIL [Concomitant]
  3. GABAPENTIN [Concomitant]
  4. NORCO [Concomitant]
  5. HYDROCODONE [Concomitant]
  6. AMITRIPTYLINE [Concomitant]

REACTIONS (1)
  - Weight increased [None]
